FAERS Safety Report 9257710 (Version 1)
Quarter: 2013Q1

REPORT INFORMATION
  Report Type: Spontaneous
  Country: US (occurrence: None)
  Receive Date: 20121212
  Receipt Date: 20121212
  Transmission Date: 20140127
  Serious: No
  Sender: FDA-Public Use
  Company Number: 1210USA005789

PATIENT
  Age: 55 Year
  Sex: Female

DRUGS (3)
  1. VICTRELIS [Suspect]
     Indication: HEPATITIS C
     Dates: start: 20120915
  2. RIBAVIRIN [Suspect]
     Indication: HEPATITIS C
     Dates: start: 20120817
  3. PEGINTERFERON ALFA-2B [Suspect]
     Indication: HEPATITIS C
     Dates: start: 20120817

REACTIONS (11)
  - Pruritus [None]
  - Asthenia [None]
  - Fatigue [None]
  - Swelling [None]
  - Abdominal discomfort [None]
  - Vaginal haemorrhage [None]
  - Vulvovaginal pain [None]
  - Vulvovaginal swelling [None]
  - Ear infection [None]
  - Localised infection [None]
  - Confusional state [None]
